FAERS Safety Report 16116256 (Version 2)
Quarter: 2019Q2

REPORT INFORMATION
  Report Type: Spontaneous
  Country: US (occurrence: US)
  Receive Date: 20190326
  Receipt Date: 20190620
  Transmission Date: 20190711
  Serious: No
  Sender: FDA-Public Use
  Company Number: US-GLENMARK PHARMACEUTICALS-2019GMK039696

PATIENT

DRUGS (1)
  1. ESTRADIOL VAGINAL INSERTS USP [Suspect]
     Active Substance: ESTRADIOL
     Indication: DYSPAREUNIA
     Dosage: TWICE A WEEK; DURATION OF USE: 2 WEEKS OR 3 WEEKS AGO
     Route: 067
     Dates: start: 201812

REACTIONS (4)
  - Wrong technique in product usage process [Unknown]
  - Medical device pain [Unknown]
  - Device difficult to use [Unknown]
  - Device material issue [Unknown]

NARRATIVE: CASE EVENT DATE: 201812
